FAERS Safety Report 14627910 (Version 1)
Quarter: 2018Q1

REPORT INFORMATION
  Report Type: Spontaneous
  Country: US (occurrence: US)
  Receive Date: 20180312
  Receipt Date: 20180312
  Transmission Date: 20180509
  Serious: No
  Sender: FDA-Public Use
  Company Number: US-MYLANLABS-2018M1012365

PATIENT
  Sex: Female

DRUGS (1)
  1. METOPROLOL. [Suspect]
     Active Substance: METOPROLOL
     Indication: PRODUCT USED FOR UNKNOWN INDICATION
     Dosage: UNK

REACTIONS (8)
  - Eye swelling [Unknown]
  - Abdominal discomfort [Unknown]
  - Headache [Unknown]
  - Hypoaesthesia oral [Unknown]
  - Erythema [Unknown]
  - Anxiety [Unknown]
  - Paraesthesia [Unknown]
  - Hypoaesthesia [Unknown]
